FAERS Safety Report 6718508-2 (Version None)
Quarter: 2010Q2

REPORT INFORMATION
  Report Type: 
  Country: None (occurrence: None)
  Receive Date: 20100510
  Receipt Date: 20100430
  Transmission Date: 20101027
  Serious: Yes (Other)
  Sender: FDA-Public Use
  Company Number: ES-B.I. PHARMACEUTICALS,INC./RIDGEFIELD-2010-ES-00112ES

PATIENT
  Age: 46 Year
  Sex: Male

DRUGS (2)
  1. VIRAMUNE [Suspect]
     Indication: HIV INFECTION
     Dosage: 200 MG
     Route: 048
     Dates: start: 20000101
  2. TRUVADA [Suspect]
     Indication: HIV INFECTION
     Dosage: 200MG/245 MG
     Route: 048
     Dates: start: 20090210

REACTIONS (2)
  - DRUG INTERACTION [None]
  - DYSLIPIDAEMIA [None]
